FAERS Safety Report 10090247 (Version 2)
Quarter: 2014Q2

REPORT INFORMATION
  Report Type: Spontaneous
  Country: US (occurrence: US)
  Receive Date: 20140421
  Receipt Date: 20140421
  Transmission Date: 20141212
  Serious: No
  Sender: FDA-Public Use
  Company Number: US-PFIZER INC-2014060615

PATIENT
  Age: 65 Year
  Sex: Female

DRUGS (7)
  1. PREMARIN [Suspect]
     Indication: HOT FLUSH
     Dosage: UNK
     Route: 048
     Dates: start: 1976
  2. PREMARIN [Suspect]
     Indication: HOMICIDAL IDEATION
     Dosage: 0.625 MG (1 TABLET), 1X/DAY
     Route: 048
     Dates: start: 20130318
  3. PRAVASTATIN [Concomitant]
     Dosage: UNK
  4. SYNTHROID [Concomitant]
     Dosage: UNK
  5. PRILOSEC [Concomitant]
     Dosage: UNK
  6. NYSTATIN [Concomitant]
     Dosage: UNK
  7. ASA [Concomitant]
     Dosage: UNK

REACTIONS (1)
  - Hypothyroidism [Unknown]
